FAERS Safety Report 9655496 (Version 2)
Quarter: 2013Q4

REPORT INFORMATION
  Report Type: Spontaneous
  Country: US (occurrence: US)
  Receive Date: 20131029
  Receipt Date: 20131029
  Transmission Date: 20140711
  Serious: No
  Sender: FDA-Public Use
  Company Number: US-PURDUE-USA-2011-0064213

PATIENT
  Age: 29 Year
  Sex: Male
  Weight: 74.83 kg

DRUGS (4)
  1. OXYCONTIN (NDA 22-272) [Suspect]
     Indication: INTERVERTEBRAL DISC PROTRUSION
     Dosage: 40 MG, BID
     Route: 048
  2. OXYCONTIN (NDA 22-272) [Suspect]
     Indication: JAW FRACTURE
     Dosage: 80 MG, BID
     Route: 048
     Dates: start: 201010
  3. KEPPRA [Concomitant]
     Indication: CONVULSION
     Dosage: 1000 MG, BID
     Route: 048
  4. VALIUM                             /00017001/ [Concomitant]
     Indication: ANXIETY
     Dosage: 10 MG, PRN
     Route: 048
     Dates: start: 2010

REACTIONS (2)
  - Drug effect decreased [Not Recovered/Not Resolved]
  - Inadequate analgesia [Not Recovered/Not Resolved]
